FAERS Safety Report 25773502 (Version 1)
Quarter: 2025Q3

REPORT INFORMATION
  Report Type: Other
  Country: CA (occurrence: CA)
  Receive Date: 20250908
  Receipt Date: 20250908
  Transmission Date: 20251020
  Serious: Yes (Other)
  Sender: APOTEX
  Company Number: CA-PGRTD-001143682

PATIENT
  Age: 27 Year
  Sex: Female
  Weight: 50.792 kg

DRUGS (1)
  1. DOXYCYCLINE [Suspect]
     Active Substance: DOXYCYCLINE
     Indication: Ureaplasma infection
     Route: 048

REACTIONS (1)
  - Ageusia [Not Recovered/Not Resolved]
